FAERS Safety Report 9541035 (Version 1)
Quarter: 2013Q3

REPORT INFORMATION
  Report Type: Spontaneous
  Country: TR (occurrence: TR)
  Receive Date: 20130922
  Receipt Date: 20130922
  Transmission Date: 20140515
  Serious: Yes (Other)
  Sender: FDA-Public Use
  Company Number: TR-MYLANLABS-2013S1020604

PATIENT
  Age: 55 Year
  Sex: Male

DRUGS (6)
  1. DOCETAXEL [Suspect]
     Indication: NASOPHARYNGEAL CANCER
     Dosage: 75 MG/M2 ON D1
     Route: 050
  2. DOCETAXEL [Suspect]
     Indication: NON-SMALL CELL LUNG CANCER METASTATIC
     Dosage: 75 MG/M2 ON D1
     Route: 050
  3. CISPLATIN [Suspect]
     Indication: NASOPHARYNGEAL CANCER
     Dosage: 75 MG/M2 ON D1
     Route: 050
  4. CISPLATIN [Suspect]
     Indication: NON-SMALL CELL LUNG CANCER METASTATIC
     Dosage: 75 MG/M2 ON D1
     Route: 050
  5. FLUOROURACIL [Suspect]
     Indication: NASOPHARYNGEAL CANCER
     Dosage: 750 MG/M2 ON D1-5 WAS PLANNED
     Route: 050
  6. FLUOROURACIL [Suspect]
     Indication: NON-SMALL CELL LUNG CANCER METASTATIC
     Dosage: 750 MG/M2 ON D1-5 WAS PLANNED
     Route: 050

REACTIONS (1)
  - Pericarditis [Recovered/Resolved]
